FAERS Safety Report 7534675-5 (Version None)
Quarter: 2011Q2

REPORT INFORMATION
  Report Type: 
  Country: None (occurrence: None)
  Receive Date: 20110609
  Receipt Date: 20110406
  Transmission Date: 20111010
  Serious: No
  Sender: FDA-Public Use
  Company Number: PHHY2011ES26515

PATIENT
  Sex: Male

DRUGS (3)
  1. TASIGNA [Suspect]
     Dosage: 400 MG, DAILY
     Route: 048
     Dates: start: 20110324
  2. TASIGNA [Suspect]
     Dosage: 200 MG, DAILY
     Route: 048
  3. TASIGNA [Suspect]
     Dosage: 300 MG, DAILY
     Route: 048
     Dates: start: 20110511

REACTIONS (6)
  - BLOOD AMYLASE INCREASED [None]
  - ABDOMINAL PAIN [None]
  - FLATULENCE [None]
  - CONSTIPATION [None]
  - HYPERHIDROSIS [None]
  - LIPASE INCREASED [None]
